FAERS Safety Report 6003140-9 (Version None)
Quarter: 2008Q4

REPORT INFORMATION
  Report Type: 
  Country: None (occurrence: None)
  Receive Date: 20081212
  Receipt Date: 20081212
  Transmission Date: 20090506
  Serious: Yes (Death, Hospitalization)
  Sender: FDA-Public Use
  Company Number: None

PATIENT
  Sex: Female
  Weight: 8.1 kg

DRUGS (17)
  1. CYCLOPHOSPHAMIDE [Suspect]
     Dosage: 370 MG
     Dates: end: 20081122
  2. CYTARABINE [Suspect]
     Dosage: 45 MG
     Dates: end: 20081203
  3. DAUNORUBICIN [Suspect]
     Dosage: 42 MG
     Dates: end: 20081120
  4. HYDROCORTISONE [Suspect]
     Dosage: 22.5 MG
     Dates: end: 20081203
  5. METHOTREXATE [Suspect]
     Dosage: 22.5 MG
     Dates: end: 20081203
  6. PEG-L-ASPARAGINASE (K-H) [Suspect]
     Dosage: 925 UNIT
     Dates: end: 20081122
  7. PREDNISONE [Suspect]
     Dosage: 255 MG
     Dates: end: 20081206
  8. VINCRISTINE SULFATE [Suspect]
     Dosage: .96 MG
     Dates: end: 20081203
  9. BACTRIM [Concomitant]
  10. CEFEPIME [Concomitant]
  11. FAMOTIDINE [Concomitant]
  12. NEUPOGEN [Concomitant]
  13. FLUCONAZOLE [Concomitant]
  14. HYDRALIZINE [Concomitant]
  15. LABATALOL [Concomitant]
  16. VANCOMYCIN [Concomitant]
  17. VASOPRESSIN [Concomitant]

REACTIONS (10)
  - BACTERIAL INFECTION [None]
  - BLOOD CULTURE POSITIVE [None]
  - BLOOD PRESSURE DECREASED [None]
  - CARDIO-RESPIRATORY ARREST [None]
  - CENTRAL NERVOUS SYSTEM FUNCTION TEST ABNORMAL [None]
  - ELECTROENCEPHALOGRAM ABNORMAL [None]
  - MENTAL STATUS CHANGES [None]
  - OXYGEN SATURATION DECREASED [None]
  - PUPIL FIXED [None]
  - PYREXIA [None]
